FAERS Safety Report 9417945 (Version 1)
Quarter: 2013Q3

REPORT INFORMATION
  Report Type: Spontaneous
  Country: US (occurrence: US)
  Receive Date: 20130724
  Receipt Date: 20130724
  Transmission Date: 20140515
  Serious: No
  Sender: FDA-Public Use
  Company Number: US-BAUSCH-BL-2012-001042

PATIENT
  Sex: Male

DRUGS (1)
  1. OPCON-A [Suspect]
     Dosage: 1 DROP, ONE TIME
     Route: 047

REACTIONS (1)
  - Eye irritation [Unknown]
